FAERS Safety Report 7557352-3 (Version None)
Quarter: 2011Q2

REPORT INFORMATION
  Report Type: 
  Country: None (occurrence: None)
  Receive Date: 20110620
  Receipt Date: 20110603
  Transmission Date: 20111010
  Serious: Yes (Other)
  Sender: FDA-Public Use
  Company Number: PHHY2011US49290

PATIENT
  Sex: Male

DRUGS (12)
  1. EXFORGE [Suspect]
     Dosage: 1 DF, QD
  2. METFORMIN HCL [Concomitant]
  3. LOSARTAN POTASSIUM [Concomitant]
  4. ALPRENOLOL [Concomitant]
  5. ZOCOR [Concomitant]
  6. COLCHICINE [Concomitant]
  7. ASPIRIN [Concomitant]
  8. TERAZOSIN HCL [Concomitant]
  9. CADUET [Concomitant]
  10. LOTENSIN HCT [Suspect]
     Dosage: 1 DF, QD
  11. METOPROLOL TARTRATE [Concomitant]
  12. VYTORIN [Concomitant]

REACTIONS (4)
  - INTERVERTEBRAL DISC PROTRUSION [None]
  - DRUG INEFFECTIVE [None]
  - HYPERTENSION [None]
  - BLOOD PRESSURE INADEQUATELY CONTROLLED [None]
